FAERS Safety Report 19189306 (Version 1)
Quarter: 2021Q2

REPORT INFORMATION
  Report Type: Spontaneous
  Country: PT (occurrence: PT)
  Receive Date: 20210428
  Receipt Date: 20210428
  Transmission Date: 20210717
  Serious: Yes (Hospitalization)
  Sender: FDA-Public Use
  Company Number: PT-ENDO PHARMACEUTICALS INC-2021-002571

PATIENT
  Age: 47 Year
  Sex: Male

DRUGS (7)
  1. OXAZEPAM. [Concomitant]
     Active Substance: OXAZEPAM
     Indication: ABSTAINS FROM ALCOHOL
     Dosage: 110 MG (15MG QID AND 50MG QD), DAILY
     Route: 065
  2. VITAMIN B1 [Concomitant]
     Active Substance: THIAMINE HYDROCHLORIDE
     Indication: ABSTAINS FROM ALCOHOL
     Dosage: 200 MG (FOR 4 DAYS), DAILY
     Route: 030
  3. DISULFIRAM. [Suspect]
     Active Substance: DISULFIRAM
     Indication: ABSTAINS FROM ALCOHOL
     Dosage: 250 MG, BID
     Route: 065
  4. FOLIC ACID. [Concomitant]
     Active Substance: FOLIC ACID
     Indication: ABSTAINS FROM ALCOHOL
     Dosage: 5 MG, DAILY
     Route: 065
  5. OXAZEPAM. [Concomitant]
     Active Substance: OXAZEPAM
     Dosage: DAY 8 95 MG (15MG TID AND 50MG QD), DAILY
     Route: 065
  6. VITAMIN B1 [Concomitant]
     Active Substance: THIAMINE HYDROCHLORIDE
     Dosage: 200 MG, DAILY
     Route: 048
  7. LACTULOSE. [Concomitant]
     Active Substance: LACTULOSE
     Indication: ABSTAINS FROM ALCOHOL
     Dosage: UNK UNKNOWN, BID
     Route: 065

REACTIONS (1)
  - Generalised tonic-clonic seizure [Recovered/Resolved]
